FAERS Safety Report 7642030-2 (Version None)
Quarter: 2011Q3

REPORT INFORMATION
  Report Type: 
  Country: None (occurrence: None)
  Receive Date: 20110728
  Receipt Date: 20110719
  Transmission Date: 20111222
  Serious: Yes (Death, Hospitalization)
  Sender: FDA-Public Use
  Company Number: JP-MERCK-1002USA01173

PATIENT
  Age: 80 Year
  Sex: Female

DRUGS (13)
  1. ENSURE [Concomitant]
     Indication: DECREASED APPETITE
     Dosage: DAILY DOSE UNKNOWN
     Route: 042
     Dates: start: 20100130
  2. ENBREL [Concomitant]
     Indication: MUSCULOSKELETAL PAIN
     Dosage: DAILY DOSE UNKNOWN
     Route: 058
     Dates: start: 20060401
  3. PREDNISOLONE [Concomitant]
     Indication: MUSCULOSKELETAL PAIN
     Dosage: DIVIDED DOSE FREQUENCY IS UNKNOWN
     Route: 048
  4. METHOTREXATE [Concomitant]
     Indication: MUSCULOSKELETAL PAIN
     Dosage: DIVIDED DOSE FRECUENCY IS UNKNOWN
     Route: 048
     Dates: start: 20050604
  5. SPIRONOLACTONE [Concomitant]
     Indication: OEDEMA
     Dosage: DAILY DOSE UNKNOWN, AS NEEDED
     Route: 048
  6. AMARYL [Concomitant]
     Dosage: DIVIDED DOSE FRECUENCY IS UNKNOWN
     Route: 048
     Dates: start: 20080201
  7. JANUVIA [Suspect]
     Indication: DIABETES MELLITUS
     Route: 048
     Dates: start: 20091219, end: 20100123
  8. NIVADIL [Concomitant]
     Dosage: DIVIDED DOSE FRECUENCY IS UNKNOWN
     Route: 048
  9. ENSURE [Concomitant]
     Indication: DEHYDRATION
     Dosage: DAILY DOSE UNKNOWN
     Route: 042
     Dates: start: 20100130
  10. LASIX [Concomitant]
     Dosage: DIVIDED DOSE FRECUENCY IS UKNOWN
     Route: 065
  11. GLUCOBAY [Concomitant]
     Dosage: DIVIDED DOSE FRECUENCY IS UNKNOWN
     Route: 048
  12. ACTOS [Concomitant]
     Dosage: DIVIDED DOSE FRECUENCY IS UNKOWN
     Route: 048
     Dates: start: 20080501
  13. DICLOFENAC SODIUM [Concomitant]
     Indication: MUSCULOSKELETAL PAIN
     Route: 048
     Dates: start: 20060210

REACTIONS (2)
  - DECREASED APPETITE [None]
  - HEPATIC CIRRHOSIS [None]
